FAERS Safety Report 7867950-5 (Version None)
Quarter: 2011Q4

REPORT INFORMATION
  Report Type: 
  Country: None (occurrence: None)
  Receive Date: 20111028
  Receipt Date: 20111025
  Transmission Date: 20120403
  Serious: Yes (Other)
  Sender: FDA-Public Use
  Company Number: US-BAYER-2011-044864

PATIENT
  Age: 79 Year
  Sex: Female
  Weight: 86.621 kg

DRUGS (2)
  1. CIPROFLOXACIN [Suspect]
     Indication: COUGH
     Dosage: 500 MG, BID
     Route: 048
     Dates: start: 20100715
  2. FAMOTIDINE [Concomitant]
     Dosage: 40 MG, UNK

REACTIONS (4)
  - GAIT DISTURBANCE [None]
  - PAIN IN EXTREMITY [None]
  - ABASIA [None]
  - OEDEMA PERIPHERAL [None]
